FAERS Safety Report 9504133 (Version 1)
Quarter: 2013Q3

REPORT INFORMATION
  Report Type: Spontaneous
  Country: US (occurrence: None)
  Receive Date: 20130905
  Receipt Date: 20130905
  Transmission Date: 20140515
  Serious: Yes (Other)
  Sender: FDA-Public Use
  Company Number: None

PATIENT
  Age: 93 Year
  Sex: Female
  Weight: 66 kg

DRUGS (11)
  1. QUETIAPINE [Suspect]
     Indication: AGITATION
     Dosage: X 2 DOSE 12.5 MG Q12H PRN PRN/AS NEEDED
     Route: 048
  2. ASPIRIN [Concomitant]
  3. CALCIUM + VITAMIN D [Concomitant]
  4. CEFTRIAXONE [Concomitant]
  5. CILOSTAZOL [Concomitant]
  6. CYANOCOBALAMIN [Concomitant]
  7. DOCUSATE SODIUM [Concomitant]
  8. ENOXAPARIN [Concomitant]
  9. INSULIN GLARGINE [Concomitant]
  10. LACTOBACILLUS [Concomitant]
  11. MAGNESIUM LACTATE [Concomitant]

REACTIONS (1)
  - Oromandibular dystonia [None]
